FAERS Safety Report 9417580 (Version 1)
Quarter: 2013Q3

REPORT INFORMATION
  Report Type: Spontaneous
  Country: US (occurrence: None)
  Receive Date: 20130722
  Receipt Date: 20130722
  Transmission Date: 20140515
  Serious: No
  Sender: FDA-Public Use
  Company Number: None

PATIENT
  Age: 21 Year
  Sex: Female

DRUGS (1)
  1. AZITHROMYCIN [Suspect]
     Indication: CHLAMYDIA TEST POSITIVE
     Route: 048
     Dates: start: 20130612, end: 20130614

REACTIONS (2)
  - Vomiting [None]
  - Aphagia [None]
